FAERS Safety Report 9596732 (Version 1)
Quarter: 2013Q4

REPORT INFORMATION
  Report Type: Spontaneous
  Country: ES (occurrence: ES)
  Receive Date: 20131004
  Receipt Date: 20131004
  Transmission Date: 20140711
  Serious: Yes (Other)
  Sender: FDA-Public Use
  Company Number: ES-GLAXOSMITHKLINE-B0927216A

PATIENT
  Age: 46 Year
  Sex: Female
  Weight: 65 kg

DRUGS (1)
  1. SERETIDE [Suspect]
     Indication: ASTHMA
     Route: 055
     Dates: start: 201301, end: 201307

REACTIONS (3)
  - Bulimia nervosa [Recovered/Resolved]
  - Abnormal weight gain [Recovered/Resolved]
  - Insomnia [Recovered/Resolved]
